FAERS Safety Report 10674014 (Version 3)
Quarter: 2015Q3

REPORT INFORMATION
  Report Type: Report from Study
  Country: DE (occurrence: DE)
  Receive Date: 20141224
  Receipt Date: 20150702
  Transmission Date: 20151125
  Serious: Yes (Hospitalization)
  Sender: FDA-Public Use
  Company Number: DE-INCYTE CORPORATION-2014IN003986

PATIENT
  Age: 65 Year
  Sex: Female
  Weight: 60 kg

DRUGS (14)
  1. INCB018424 [Suspect]
     Active Substance: RUXOLITINIB
     Dosage: 2 DF (15 MG), QD
     Route: 048
     Dates: start: 20140613, end: 20140813
  2. INCB018424 [Suspect]
     Active Substance: RUXOLITINIB
     Dosage: 1 DF(15 MG), QD
     Route: 048
     Dates: start: 20141112, end: 20141208
  3. INCB018424 [Suspect]
     Active Substance: RUXOLITINIB
     Indication: MYELOFIBROSIS
     Dosage: 2 DF (5 MG), QD
     Route: 048
     Dates: start: 20140528
  4. IBUPROFEN. [Concomitant]
     Active Substance: IBUPROFEN
     Indication: INTERVERTEBRAL DISC PROTRUSION
     Dosage: UNK
     Route: 065
     Dates: start: 20130902
  5. DOXYCYCLINE. [Concomitant]
     Active Substance: DOXYCYCLINE
     Indication: PHARYNGITIS
     Dosage: UNK
     Route: 065
     Dates: start: 20140613
  6. INCB018424 [Suspect]
     Active Substance: RUXOLITINIB
     Dosage: 2 DF (15 MG), QD
     Route: 048
     Dates: start: 20141209
  7. LITALIR [Concomitant]
     Active Substance: HYDROXYUREA
     Indication: MYELOFIBROSIS
     Dosage: UNK
     Route: 065
     Dates: start: 20141204, end: 20141218
  8. LEVOFLOXACIN. [Concomitant]
     Active Substance: LEVOFLOXACIN
     Dosage: UNK
     Route: 065
     Dates: start: 20141222, end: 20141229
  9. INCB018424 [Suspect]
     Active Substance: RUXOLITINIB
     Dosage: 2 DF (15 MG), QD
     Route: 048
     Dates: start: 20141030, end: 20141111
  10. FORMOTEROL A [Concomitant]
     Dosage: UNK
     Route: 065
     Dates: start: 20140513
  11. INCB018424 [Suspect]
     Active Substance: RUXOLITINIB
     Dosage: 2 DF (5 MG), QD
     Route: 048
     Dates: start: 20140814, end: 20141029
  12. NOVAMINSULFON [Concomitant]
     Active Substance: METAMIZOLE
     Dosage: UNK
     Route: 065
     Dates: start: 20140908
  13. CLONT [Concomitant]
     Indication: PRODUCT USED FOR UNKNOWN INDICATION
     Dosage: UNK
     Route: 065
     Dates: start: 20150217, end: 20150306
  14. CEFAZOLIN [Concomitant]
     Active Substance: CEFAZOLIN
     Indication: PRODUCT USED FOR UNKNOWN INDICATION
     Dosage: UNK
     Route: 065
     Dates: start: 20150217, end: 20150306

REACTIONS (3)
  - Blast cell crisis [Unknown]
  - Leukaemoid reaction [Not Recovered/Not Resolved]
  - White blood cell count increased [Unknown]

NARRATIVE: CASE EVENT DATE: 20141208
